FAERS Safety Report 5427107-4 (Version None)
Quarter: 2007Q3

REPORT INFORMATION
  Report Type: 
  Country: None (occurrence: None)
  Receive Date: 20070823
  Receipt Date: 20070823
  Transmission Date: 20080115
  Serious: Yes (Hospitalization)
  Sender: FDA-Public Use
  Company Number: None

PATIENT
  Age: 39 Year
  Sex: Male
  Weight: 96.2 kg

DRUGS (2)
  1. TACROLIMUS [Suspect]
     Indication: IMMUNOSUPPRESSION
     Dosage: 1 MG Q12H
     Dates: start: 20061001, end: 20070203
  2. VORICONAZOLE [Suspect]
     Indication: PROPHYLAXIS
     Dosage: 200MG Q12H
     Dates: start: 20061001, end: 20070203

REACTIONS (2)
  - PARAESTHESIA [None]
  - VISION BLURRED [None]
